FAERS Safety Report 18371664 (Version 6)
Quarter: 2020Q4

REPORT INFORMATION
  Report Type: Spontaneous
  Country: US (occurrence: US)
  Receive Date: 20201012
  Receipt Date: 20201126
  Transmission Date: 20210114
  Serious: Yes (Other)
  Sender: FDA-Public Use
  Company Number: US-PFIZER INC-2019354387

PATIENT
  Age: 79 Year
  Sex: Male
  Weight: 90.2 kg

DRUGS (3)
  1. CAVERJECT [Suspect]
     Active Substance: ALPROSTADIL
     Dosage: 10 UG (10MCG PER INJECTION)
  2. BACTERIOSTATIC WATER [Concomitant]
     Active Substance: WATER
     Dosage: UNK
  3. CAVERJECT [Suspect]
     Active Substance: ALPROSTADIL
     Dosage: 120 UG, 2X/WEEK (SOMETIMES HE GOES UP TO 160UG)

REACTIONS (3)
  - Feeling abnormal [Unknown]
  - Prostatomegaly [Unknown]
  - Prescribed overdose [Unknown]
